FAERS Safety Report 8813424 (Version 1)
Quarter: 2012Q4

REPORT INFORMATION
  Report Type: 
  Country: US (occurrence: US)
  Receive Date: 20120927
  Receipt Date: 20120927
  Transmission Date: 20130627
  Serious: No
  Sender: FDA-Public Use
  Company Number: US-AMGEN-USASP2012048088

PATIENT
  Age: 85 Year
  Sex: Female

DRUGS (12)
  1. PROLIA [Suspect]
     Indication: OSTEOPOROSIS POSTMENOPAUSAL
     Dosage: 60 mg, q6mo
     Dates: start: 201103
  2. PROLIA [Suspect]
  3. PAROXETINE [Concomitant]
  4. HYDROCODONE [Concomitant]
  5. LISINOPRIL [Concomitant]
  6. DOXEPIN [Concomitant]
  7. VENASTAT [Concomitant]
     Dates: start: 2012
  8. NIACIN [Concomitant]
     Dosage: UNK
     Dates: start: 2012, end: 2012
  9. NIACIN [Concomitant]
     Dates: end: 2012
  10. FISH OIL [Concomitant]
     Dosage: UNK
     Dates: start: 2012, end: 2012
  11. FISH OIL [Concomitant]
     Dates: end: 2012
  12. DHA [Concomitant]
     Indication: MEMORY IMPAIRMENT
     Dates: start: 201207

REACTIONS (17)
  - Skin haemorrhage [Not Recovered/Not Resolved]
  - Memory impairment [Not Recovered/Not Resolved]
  - Feeling abnormal [Not Recovered/Not Resolved]
  - Pallor [Not Recovered/Not Resolved]
  - Skin hyperpigmentation [Not Recovered/Not Resolved]
  - Pain [Not Recovered/Not Resolved]
  - Malaise [Not Recovered/Not Resolved]
  - Arthralgia [Not Recovered/Not Resolved]
  - Sensation of heaviness [Not Recovered/Not Resolved]
  - Fatigue [Not Recovered/Not Resolved]
  - Myalgia [Not Recovered/Not Resolved]
  - Urine output increased [Not Recovered/Not Resolved]
  - Nocturia [Not Recovered/Not Resolved]
  - Pruritus [Not Recovered/Not Resolved]
  - Middle insomnia [Not Recovered/Not Resolved]
  - Pain in extremity [Not Recovered/Not Resolved]
  - Erythema [Not Recovered/Not Resolved]
